FAERS Safety Report 8207063-6 (Version None)
Quarter: 2012Q1

REPORT INFORMATION
  Report Type: 
  Country: None (occurrence: None)
  Receive Date: 20120314
  Receipt Date: 20120306
  Transmission Date: 20120608
  Serious: Yes (Hospitalization)
  Sender: FDA-Public Use
  Company Number: US-BAYER-2012-023059

PATIENT
  Age: 47 Year
  Sex: Female
  Weight: 102.95 kg

DRUGS (9)
  1. YASMIN [Suspect]
  2. ASCORBIC ACID [Concomitant]
     Dosage: UNK UNK, QD
     Route: 048
  3. VITAMIN B COMPLEX CAP [Concomitant]
     Route: 048
  4. PREVACID [Concomitant]
     Route: 048
  5. PREDNISONE TAB [Concomitant]
     Indication: COUGH
     Dosage: UNK
     Route: 048
     Dates: start: 20110613
  6. AZITHROMYCIN [Concomitant]
     Indication: COUGH
     Dosage: UNK
     Route: 048
     Dates: start: 20110613
  7. MOBIC [Concomitant]
     Indication: ARTHRITIS
     Route: 048
  8. VITAMIN B-12 [Concomitant]
     Dosage: UNK UNK, QD
     Route: 048
  9. CEPHALEXIN [Concomitant]
     Indication: COUGH

REACTIONS (1)
  - PULMONARY EMBOLISM [None]
